FAERS Safety Report 13833174 (Version 2)
Quarter: 2017Q4

REPORT INFORMATION
  Report Type: Report from Study
  Country: CA (occurrence: CA)
  Receive Date: 20170803
  Receipt Date: 20171107
  Transmission Date: 20180320
  Serious: Yes (Hospitalization, Other)
  Sender: FDA-Public Use
  Company Number: CA-TERSERA THERAPEUTICS, LLC-2024138

PATIENT
  Age: 68 Year
  Sex: Male

DRUGS (5)
  1. ZOLADEX [Suspect]
     Active Substance: GOSERELIN ACETATE
     Indication: PROSTATE CANCER
     Route: 058
     Dates: start: 20151229
  2. AMLODIPINE [Concomitant]
     Active Substance: AMLODIPINE BESYLATE
     Route: 065
  3. ASPIRIN. [Concomitant]
     Active Substance: ASPIRIN
     Route: 065
  4. ADVIL [Concomitant]
     Active Substance: IBUPROFEN
     Route: 065
  5. LITHIUM. [Concomitant]
     Active Substance: LITHIUM
     Route: 065

REACTIONS (7)
  - Brain stem infarction [Recovered/Resolved]
  - Vertigo [Recovering/Resolving]
  - Memory impairment [Not Recovered/Not Resolved]
  - Ataxia [Not Recovered/Not Resolved]
  - Fall [Unknown]
  - Fatigue [Not Recovered/Not Resolved]
  - Lateral medullary syndrome [Recovering/Resolving]

NARRATIVE: CASE EVENT DATE: 201706
